FAERS Safety Report 17777149 (Version 6)
Quarter: 2021Q1

REPORT INFORMATION
  Report Type: Spontaneous
  Country: IL (occurrence: IL)
  Receive Date: 20200513
  Receipt Date: 20210127
  Transmission Date: 20210419
  Serious: Yes (Hospitalization, Disabling, Other)
  Sender: FDA-Public Use
  Company Number: IL-KYOWAKIRIN-2020BKK007567

PATIENT

DRUGS (2)
  1. VITAMIN D NOS [Concomitant]
     Active Substance: VITAMIN D NOS
     Indication: PRODUCT USED FOR UNKNOWN INDICATION
     Dosage: 600 IU, QD
     Route: 065
     Dates: start: 201911
  2. CRYSVITA [Suspect]
     Active Substance: BUROSUMAB-TWZA
     Indication: HEREDITARY HYPOPHOSPHATAEMIC RICKETS
     Dosage: 70 MG, 1X/MONTH
     Route: 065
     Dates: start: 201911, end: 2020

REACTIONS (6)
  - Vertebral foraminal stenosis [Recovering/Resolving]
  - Lumbar spinal stenosis [Recovering/Resolving]
  - Ligamentum flavum hypertrophy [Recovering/Resolving]
  - Spinal osteoarthritis [Recovering/Resolving]
  - Facet joint syndrome [Recovering/Resolving]
  - Spinal ligament ossification [Unknown]

NARRATIVE: CASE EVENT DATE: 20200506
